FAERS Safety Report 4298781-3 (Version None)
Quarter: 2004Q1

REPORT INFORMATION
  Report Type: 
  Country: None (occurrence: None)
  Receive Date: 20040126
  Receipt Date: 20031022
  Transmission Date: 20041129
  Serious: No
  Sender: FDA-Public Use
  Company Number: USA031050681

PATIENT
  Age: 38 Year
  Sex: Male

DRUGS (1)
  1. STRATTERA [Suspect]

REACTIONS (2)
  - ERECTILE DYSFUNCTION [None]
  - PENILE PAIN [None]
